FAERS Safety Report 7064547-4 (Version None)
Quarter: 2010Q4

REPORT INFORMATION
  Report Type: 
  Country: None (occurrence: None)
  Receive Date: 20101027
  Receipt Date: 20101021
  Transmission Date: 20110411
  Serious: Yes (Hospitalization)
  Sender: FDA-Public Use
  Company Number: JP-PFIZER INC-2010103691

PATIENT
  Age: 50 Year
  Sex: Male
  Weight: 68 kg

DRUGS (6)
  1. SUNITINIB MALATE [Suspect]
     Indication: RENAL CELL CARCINOMA
     Dosage: 50 MG, 1X/DAY
     Route: 048
     Dates: start: 20081111, end: 20090107
  2. FENTANYL [Concomitant]
     Indication: RENAL CELL CARCINOMA
     Dosage: 0.7 MG, 3X/DAY
     Route: 062
     Dates: start: 20081118
  3. NAIXAN [Concomitant]
     Indication: RENAL CELL CARCINOMA
     Dosage: 100 MG, 2X/DAY
     Route: 048
  4. URSO 250 [Concomitant]
     Dosage: 100 MG, 3X/DAY
     Route: 048
     Dates: start: 20081125
  5. MESADORIN S [Concomitant]
     Dosage: 0.5 G, 2X/DAY
     Route: 048
  6. FAMOTIDINE [Concomitant]
     Dosage: 10 MG, 2X/DAY
     Route: 048

REACTIONS (1)
  - CHOLECYSTITIS [None]
